FAERS Safety Report 5614209-2 (Version None)
Quarter: 2008Q1

REPORT INFORMATION
  Report Type: 
  Country: None (occurrence: None)
  Receive Date: 20080205
  Receipt Date: 20080124
  Transmission Date: 20080703
  Serious: Yes (Hospitalization)
  Sender: FDA-Public Use
  Company Number: US-PFIZER INC-2006108750

PATIENT
  Sex: Male
  Weight: 61.24 kg

DRUGS (7)
  1. SUTENT [Suspect]
     Indication: RENAL CELL CARCINOMA
     Route: 048
  2. LEXAPRO [Concomitant]
     Route: 048
  3. PROTONIX [Concomitant]
     Route: 048
     Dates: start: 20050101
  4. CARAFATE [Concomitant]
     Route: 048
     Dates: start: 20050101
  5. PROCRIT [Concomitant]
     Dosage: TEXT:40,000 U
     Route: 058
     Dates: start: 20051220
  6. ALLOPURINOL [Concomitant]
     Route: 048
     Dates: start: 20060106
  7. LASIX [Concomitant]
     Route: 048
     Dates: start: 20060214

REACTIONS (1)
  - RECTAL ABSCESS [None]
